FAERS Safety Report 6025381-7 (Version None)
Quarter: 2008Q4

REPORT INFORMATION
  Report Type: 
  Country: None (occurrence: None)
  Receive Date: 20081229
  Receipt Date: 20081229
  Transmission Date: 20090506
  Serious: Yes (Hospitalization)
  Sender: FDA-Public Use
  Company Number: None

PATIENT
  Age: 51 Year
  Sex: Female
  Weight: 77.1115 kg

DRUGS (2)
  1. BYETTA [Suspect]
     Indication: DIABETES MELLITUS
     Dosage: 10MCG 2 TIMES SQ
     Route: 058
     Dates: start: 20060915, end: 20081201
  2. BYETTA [Suspect]
     Indication: WEIGHT CONTROL
     Dosage: 10MCG 2 TIMES SQ
     Route: 058
     Dates: start: 20060915, end: 20081201

REACTIONS (3)
  - MALAISE [None]
  - PAIN [None]
  - PANCREATITIS [None]
